FAERS Safety Report 9100067 (Version 2)
Quarter: 2013Q1

REPORT INFORMATION
  Report Type: Spontaneous
  Country: US (occurrence: US)
  Receive Date: 20130215
  Receipt Date: 20130227
  Transmission Date: 20140127
  Serious: Yes (Other)
  Sender: FDA-Public Use
  Company Number: US-TEVA-386193USA

PATIENT
  Sex: Female

DRUGS (1)
  1. COPAXONE [Suspect]
     Indication: MULTIPLE SCLEROSIS

REACTIONS (5)
  - Anaphylactic shock [Unknown]
  - Pruritus [Unknown]
  - Dyspnoea [Unknown]
  - Vomiting [Unknown]
  - Drug hypersensitivity [Unknown]
